FAERS Safety Report 8983708 (Version 1)
Quarter: 2012Q4

REPORT INFORMATION
  Report Type: 
  Country: FR (occurrence: FR)
  Receive Date: 20121224
  Receipt Date: 20121224
  Transmission Date: 20130627
  Serious: Yes (Hospitalization, Other)
  Sender: FDA-Public Use
  Company Number: PHHY2012FR117959

PATIENT
  Age: 52 Year
  Sex: Female
  Weight: 159 kg

DRUGS (5)
  1. CERTICAN [Suspect]
     Indication: LUNG TRANSPLANT
     Dosage: 3.5 mg, BID
     Dates: end: 201211
  2. MIRCERA [Concomitant]
     Dosage: 150 ug once a month
  3. VASTEN [Concomitant]
     Dosage: 20 mg, UNK
  4. ZELITREX [Concomitant]
     Dosage: 500 mg, BID
  5. BACTRIM [Concomitant]
     Dosage: 1 DF, 3 times a week

REACTIONS (8)
  - Pulmonary mass [Unknown]
  - Interstitial lung disease [Not Recovered/Not Resolved]
  - Pulmonary congestion [Unknown]
  - Pulmonary function test decreased [Unknown]
  - Glomerular filtration rate decreased [Unknown]
  - Blood creatinine increased [Unknown]
  - Blood pressure fluctuation [Unknown]
  - Immunosuppressant drug level increased [Unknown]
